FAERS Safety Report 7755792-0 (Version None)
Quarter: 2011Q3

REPORT INFORMATION
  Report Type: 
  Country: None (occurrence: None)
  Receive Date: 20110915
  Receipt Date: 20110915
  Transmission Date: 20111222
  Serious: Yes (Other)
  Sender: FDA-Public Use
  Company Number: None

PATIENT
  Age: 4 Year
  Sex: Male

DRUGS (1)
  1. TUBERCULIN NOS [Suspect]
     Dates: start: 20110831

REACTIONS (1)
  - INJECTION SITE ERYTHEMA [None]
